FAERS Safety Report 18709464 (Version 1)
Quarter: 2021Q1

REPORT INFORMATION
  Report Type: Spontaneous
  Country: DE (occurrence: DE)
  Receive Date: 20210107
  Receipt Date: 20210107
  Transmission Date: 20210419
  Serious: Yes (Hospitalization)
  Sender: FDA-Public Use
  Company Number: DE-ALKEM LABORATORIES LIMITED-DE-ALKEM-2020-09433

PATIENT
  Age: 77 Year
  Sex: Female
  Weight: 66 kg

DRUGS (7)
  1. MELPERONE [Concomitant]
     Active Substance: MELPERONE
     Indication: RESTLESSNESS
     Dosage: 150 MILLIGRAM, QD
     Route: 048
  2. ZOLPIDEM [Concomitant]
     Active Substance: ZOLPIDEM TARTRATE
     Indication: ANXIETY
     Dosage: 60 MILLIGRAM, QD, (EVERY 1 DAY)
     Route: 048
  3. DIAZEPAM. [Concomitant]
     Active Substance: DIAZEPAM
     Indication: PRODUCT USED FOR UNKNOWN INDICATION
     Dosage: 80 MILLIGRAM, QD, (EVERY 1 DAY)
     Route: 048
  4. PIPAMPERONE [Concomitant]
     Active Substance: PIPAMPERONE
     Indication: RESTLESSNESS
     Dosage: 80 MILLIGRAM, QD, (EVERY 1 DAY)
     Route: 048
     Dates: start: 20201027
  5. PREGABALIN. [Suspect]
     Active Substance: PREGABALIN
     Indication: RESTLESSNESS
     Dosage: 600 MILLIGRAM, QD, (EVERY 1 DAY)
     Route: 048
     Dates: end: 20200920
  6. OXAZEPAM. [Concomitant]
     Active Substance: OXAZEPAM
     Indication: PRODUCT USED FOR UNKNOWN INDICATION
     Dosage: 50 MILLIGRAM, QD, (EVERY 1 DAY)
     Route: 048
     Dates: start: 20200930
  7. FLUOXETINE [Concomitant]
     Active Substance: FLUOXETINE HYDROCHLORIDE
     Indication: DEPRESSION
     Dosage: 20 MILLIGRAM, QD, (EVERY 1 DAY)
     Route: 048

REACTIONS (1)
  - Parkinsonism [Recovered/Resolved]

NARRATIVE: CASE EVENT DATE: 20200920
